FAERS Safety Report 6555111-1 (Version None)
Quarter: 2010Q1

REPORT INFORMATION
  Report Type: 
  Country: None (occurrence: None)
  Receive Date: 20100128
  Receipt Date: 20100122
  Transmission Date: 20100710
  Serious: Yes (Hospitalization)
  Sender: FDA-Public Use
  Company Number: FR-WYE-G05416510

PATIENT
  Sex: Female

DRUGS (2)
  1. EFFEXOR [Suspect]
     Route: 048
     Dates: start: 20091102, end: 20091103
  2. ATARAX [Suspect]
     Route: 048
     Dates: start: 20091102, end: 20091103

REACTIONS (7)
  - BALANCE DISORDER [None]
  - DYSARTHRIA [None]
  - HYPERREFLEXIA [None]
  - HYPOAESTHESIA [None]
  - MOBILITY DECREASED [None]
  - MUSCULAR WEAKNESS [None]
  - MYOCLONUS [None]
